FAERS Safety Report 5935864-3 (Version None)
Quarter: 2008Q4

REPORT INFORMATION
  Report Type: 
  Country: None (occurrence: None)
  Receive Date: 20081030
  Receipt Date: 20081029
  Transmission Date: 20090506
  Serious: Yes (Hospitalization)
  Sender: FDA-Public Use
  Company Number: FR-BRISTOL-MYERS SQUIBB COMPANY-14383947

PATIENT
  Age: 57 Year
  Sex: Female

DRUGS (4)
  1. ERBITUX [Suspect]
     Indication: NEOPLASM MALIGNANT
     Dosage: 33.3333 MG/M2 (500 MG/M2 1 IN 15 D)
     Route: 042
     Dates: start: 20061107, end: 20071030
  2. ELOXATIN [Suspect]
     Indication: NEOPLASM MALIGNANT
     Dosage: FORM = SOLN FOR INJ. 4.6667 MG/M2 (70 MG/M2 1 IN 15 D)
     Route: 042
     Dates: start: 20070118, end: 20070215
  3. AVASTIN [Suspect]
     Indication: NEOPLASM MALIGNANT
     Dosage: FORM = SOLN FOR INJ. 0.3333 MG/KG (5 MG/KG 1 IN 15 D)
     Route: 042
     Dates: start: 20070118, end: 20070215
  4. FLUOROURACIL [Suspect]
     Indication: NEOPLASM MALIGNANT
     Dosage: FLUOROURACILE DAKOTA. FORM = SOLN FOR INJ. 186.6667 MG/M2 (2800 MG/M2 1 IN 15 D)
     Route: 042
     Dates: start: 20070118, end: 20070302

REACTIONS (5)
  - HAEMATURIA [None]
  - HAEMOLYTIC ANAEMIA [None]
  - PYREXIA [None]
  - THROMBOCYTOPENIA [None]
  - VOMITING [None]
